FAERS Safety Report 6718487-8 (Version None)
Quarter: 2010Q2

REPORT INFORMATION
  Report Type: 
  Country: None (occurrence: None)
  Receive Date: 20100510
  Receipt Date: 20100429
  Transmission Date: 20101027
  Serious: Yes (Disabling, Other)
  Sender: FDA-Public Use
  Company Number: US-PFIZER INC-A029465

PATIENT
  Sex: Female
  Weight: 74.83 kg

DRUGS (9)
  1. CARDURA [Suspect]
     Indication: HYPERTENSION
     Dosage: 1 MG, DAILY
     Route: 048
     Dates: start: 19930501, end: 20000101
  2. METHOTREXATE [Suspect]
     Indication: OSTEOPOROSIS
     Dates: start: 19990101
  3. METHOTREXATE [Suspect]
     Indication: RHEUMATOID ARTHRITIS
  4. METHOTREXATE [Suspect]
     Indication: OSTEOARTHRITIS
  5. FOLIC ACID [Concomitant]
  6. ETIDRONATE DISODIUM [Concomitant]
  7. ATENOLOL [Concomitant]
  8. FELODIPINE [Concomitant]
  9. FUROSEMIDE [Concomitant]

REACTIONS (9)
  - BLOOD CHOLESTEROL INCREASED [None]
  - DRUG INEFFECTIVE [None]
  - FATIGUE [None]
  - INSOMNIA [None]
  - OEDEMA PERIPHERAL [None]
  - OSTEOARTHRITIS [None]
  - OSTEOPOROSIS [None]
  - PAIN IN EXTREMITY [None]
  - RHEUMATOID ARTHRITIS [None]
